FAERS Safety Report 8325677-X (Version None)
Quarter: 2012Q2

REPORT INFORMATION
  Report Type: 
  Country: None (occurrence: None)
  Receive Date: 20120501
  Receipt Date: 20120501
  Transmission Date: 20120825
  Serious: Yes (Other)
  Sender: FDA-Public Use
  Company Number: None

PATIENT
  Age: 84 Year
  Sex: Male

DRUGS (1)
  1. RED CELL UNIT [Suspect]
     Indication: ANAEMIA
     Dates: start: 20120304, end: 20120304

REACTIONS (8)
  - TACHYPNOEA [None]
  - TRANSFUSION REACTION [None]
  - RALES [None]
  - BLOOD PRESSURE INCREASED [None]
  - OXYGEN SATURATION DECREASED [None]
  - CHILLS [None]
  - WHEEZING [None]
  - PYREXIA [None]
